FAERS Safety Report 11221564 (Version 3)
Quarter: 2015Q4

REPORT INFORMATION
  Report Type: Spontaneous
  Country: BR (occurrence: BR)
  Receive Date: 20150626
  Receipt Date: 20151120
  Transmission Date: 20160304
  Serious: Yes (Death, Other)
  Sender: FDA-Public Use
  Company Number: BR-SA-2015SA091039

PATIENT
  Sex: Male

DRUGS (3)
  1. HYDROCORTISONE. [Concomitant]
     Active Substance: HYDROCORTISONE
     Indication: PREMEDICATION
  2. FABRAZYME [Suspect]
     Active Substance: AGALSIDASE BETA
     Indication: FABRY^S DISEASE
     Route: 042
     Dates: start: 20140709, end: 20150513
  3. DIPYRONE [Concomitant]
     Active Substance: DIPYRONE
     Indication: PREMEDICATION

REACTIONS (4)
  - Blood disorder [Unknown]
  - Infarction [Unknown]
  - Cardiac disorder [Unknown]
  - Cardiac failure [Fatal]
